FAERS Safety Report 9285704 (Version 1)
Quarter: 2013Q2

REPORT INFORMATION
  Report Type: Spontaneous
  Country: BR (occurrence: None)
  Receive Date: 20130507
  Receipt Date: 20130507
  Transmission Date: 20140414
  Serious: Yes (Hospitalization)
  Sender: FDA-Public Use
  Company Number: DSJ-2013-09708

PATIENT
  Age: 6 Decade
  Sex: Male

DRUGS (4)
  1. BENICAR [Suspect]
     Indication: HYPERTENSION
     Dosage: 40 MG (1 IN 1 D), PER ORAL
     Route: 048
     Dates: start: 2009
  2. LEVOTHYROXINE SODIUM [Concomitant]
  3. METFORMIN [Concomitant]
  4. GLIMEPIRIDE [Concomitant]

REACTIONS (2)
  - Abdominal pain [None]
  - Coeliac disease [None]
